FAERS Safety Report 4803443-7 (Version None)
Quarter: 2005Q4

REPORT INFORMATION
  Report Type: 
  Country: None (occurrence: None)
  Receive Date: 20051014
  Receipt Date: 20051011
  Transmission Date: 20060501
  Serious: Yes (Hospitalization, Other)
  Sender: FDA-Public Use
  Company Number: TCI2005A02491

PATIENT
  Age: 81 Year
  Sex: Male

DRUGS (3)
  1. LEUPLIN SR [Suspect]
     Indication: PROSTATE CANCER
     Dosage: 11.25 MG (11.25 MG, 1 IN 12 WK), SUBCUTANEOUS
     Route: 058
     Dates: start: 20050316, end: 20050621
  2. LEUPROLIDE ACETATE [Suspect]
     Indication: PROSTATE CANCER
     Dosage: 3.75 MG (3.75 MG, 1 IN 28 D), SUBCUTANEOUS
     Route: 058
     Dates: start: 20050215, end: 20050215
  3. CASODEX [Suspect]
     Dosage: 80 MG (80 MG , 1 IN 1 D), PER ORAL
     Route: 048
     Dates: start: 20050209, end: 20050517

REACTIONS (1)
  - ANAEMIA [None]
